FAERS Safety Report 8343330-3 (Version None)
Quarter: 2012Q2

REPORT INFORMATION
  Report Type: 
  Country: None (occurrence: None)
  Receive Date: 20120508
  Receipt Date: 20120503
  Transmission Date: 20120825
  Serious: Yes (Hospitalization)
  Sender: FDA-Public Use
  Company Number: PHHY2012SI026803

PATIENT
  Sex: Female

DRUGS (18)
  1. PROMAZINE HYDROCHLORIDE [Suspect]
     Indication: DEPRESSION
  2. FLUOXETINE [Suspect]
     Indication: DEPRESSION
  3. NEURONTIN [Suspect]
     Indication: DEPRESSION
  4. LORAZEPAM [Suspect]
     Indication: DEPRESSION
  5. EXELON [Suspect]
     Indication: DEMENTIA ALZHEIMER'S TYPE
     Dosage: 6 MG, BID
     Route: 048
  6. PROMAZINE HYDROCHLORIDE [Suspect]
     Indication: DEMENTIA ALZHEIMER'S TYPE
     Dosage: 25 MG, UNK
     Route: 048
  7. FLUOXETINE [Suspect]
     Indication: DEMENTIA ALZHEIMER'S TYPE
     Dosage: 20 MG, BID
     Route: 048
  8. BUPRENORPHINE [Concomitant]
  9. ZOLPIDEM TARTRATE [Suspect]
     Indication: DEPRESSION
  10. RISPERIDONE [Suspect]
     Indication: DEMENTIA ALZHEIMER'S TYPE
     Dosage: 0.5 MG, UNK
     Route: 048
  11. EXELON [Suspect]
     Indication: DEPRESSION
  12. RISPERIDONE [Suspect]
     Indication: DEPRESSION
  13. NEURONTIN [Suspect]
     Indication: DEMENTIA ALZHEIMER'S TYPE
     Dosage: 100 MG, BID
     Route: 048
     Dates: end: 20120206
  14. ZOLPIDEM TARTRATE [Suspect]
     Indication: DEMENTIA ALZHEIMER'S TYPE
     Dosage: 20 MG, UNK
     Route: 048
  15. LORAZEPAM [Suspect]
     Indication: DEMENTIA ALZHEIMER'S TYPE
     Dosage: 2.5 MG, TID
     Route: 048
  16. BERODUAL [Concomitant]
  17. VALSACOR [Concomitant]
  18. LANTREA [Concomitant]

REACTIONS (3)
  - PNEUMONIA ASPIRATION [None]
  - ASPIRATION [None]
  - SOMNOLENCE [None]
